FAERS Safety Report 14757724 (Version 1)
Quarter: 2018Q2

REPORT INFORMATION
  Report Type: Spontaneous
  Country: US (occurrence: US)
  Receive Date: 20180409
  Receipt Date: 20180409
  Transmission Date: 20180711
  Serious: No
  Sender: FDA-Public Use
  Company Number: None

PATIENT
  Age: 67 Year
  Sex: Male
  Weight: 78.75 kg

DRUGS (3)
  1. XANAX [Concomitant]
     Active Substance: ALPRAZOLAM
  2. BABY ASPIRIN [Concomitant]
     Active Substance: ASPIRIN
  3. MELOXICAM. [Suspect]
     Active Substance: MELOXICAM
     Indication: EPICONDYLITIS
     Dosage: ?          QUANTITY:1 TABLET(S);?
     Route: 048

REACTIONS (1)
  - Tinnitus [None]

NARRATIVE: CASE EVENT DATE: 20180404
